FAERS Safety Report 21710520 (Version 4)
Quarter: 2023Q1

REPORT INFORMATION
  Report Type: Report from Study
  Country: CA (occurrence: CA)
  Receive Date: 20221212
  Receipt Date: 20230113
  Transmission Date: 20230417
  Serious: Yes (Other)
  Sender: FDA-Public Use
  Company Number: CA-JNJFOC-20221212104

PATIENT
  Age: 9 Year
  Sex: Female
  Weight: 36.3 kg

DRUGS (3)
  1. REMICADE [Suspect]
     Active Substance: INFLIXIMAB
     Indication: Juvenile idiopathic arthritis
     Route: 042
     Dates: start: 20220726
  2. REMICADE [Suspect]
     Active Substance: INFLIXIMAB
     Dosage: EXPIRY DATE: 01-JUL-2025
     Route: 042
     Dates: start: 2022
  3. BENADRYL [Concomitant]
     Active Substance: DIPHENHYDRAMINE HYDROCHLORIDE
     Indication: Premedication
     Route: 042
     Dates: start: 20230104

REACTIONS (5)
  - Infusion related reaction [Unknown]
  - Juvenile idiopathic arthritis [Unknown]
  - Chest discomfort [Recovered/Resolved]
  - Cough [Recovering/Resolving]
  - Respiratory tract infection viral [Unknown]

NARRATIVE: CASE EVENT DATE: 20220101
